FAERS Safety Report 10751852 (Version 3)
Quarter: 2016Q2

REPORT INFORMATION
  Report Type: Spontaneous
  Country: US (occurrence: US)
  Receive Date: 20150130
  Receipt Date: 20160421
  Transmission Date: 20160815
  Serious: Yes (Death, Other)
  Sender: FDA-Public Use
  Company Number: US-PFIZER INC-2015040132

PATIENT
  Sex: Female

DRUGS (3)
  1. RISPERIDONE. [Interacting]
     Active Substance: RISPERIDONE
     Dosage: UNK (TWO MONTHS)
     Dates: start: 2014
  2. EFFEXOR XR [Suspect]
     Active Substance: VENLAFAXINE HYDROCHLORIDE
     Dosage: UNK (TWO MONTHS)
     Dates: start: 2014
  3. XANAX [Interacting]
     Active Substance: ALPRAZOLAM
     Dosage: UNK (TWO MONTHS)
     Dates: start: 2014

REACTIONS (2)
  - Completed suicide [Fatal]
  - Drug interaction [Fatal]

NARRATIVE: CASE EVENT DATE: 2014
